FAERS Safety Report 11099734 (Version 2)
Quarter: 2016Q1

REPORT INFORMATION
  Report Type: Report from Study
  Country: US (occurrence: US)
  Receive Date: 20150508
  Receipt Date: 20160119
  Transmission Date: 20160525
  Serious: No
  Sender: FDA-Public Use
  Company Number: US-AMGEN-USASL2015042874

PATIENT
  Age: 31 Year
  Sex: Female

DRUGS (1)
  1. ENBREL [Suspect]
     Active Substance: ETANERCEPT
     Indication: RHEUMATOID ARTHRITIS
     Dosage: 50 MG, ONCE WEEKLY
     Route: 065
     Dates: start: 20150309

REACTIONS (4)
  - Therapeutic response decreased [Unknown]
  - Musculoskeletal stiffness [Recovering/Resolving]
  - Pain in extremity [Recovering/Resolving]
  - Fatigue [Unknown]

NARRATIVE: CASE EVENT DATE: 2015
